FAERS Safety Report 21160414 (Version 2)
Quarter: 2022Q3

REPORT INFORMATION
  Report Type: Spontaneous
  Country: CN (occurrence: CN)
  Receive Date: 20220802
  Receipt Date: 20220805
  Transmission Date: 20221027
  Serious: Yes (Hospitalization, Other)
  Sender: FDA-Public Use
  Company Number: CN-Accord-271622

PATIENT
  Age: 4 Day
  Sex: Female
  Weight: 3.04 kg

DRUGS (3)
  1. FLUOROURACIL [Suspect]
     Active Substance: FLUOROURACIL
     Indication: Hepatoblastoma
     Dosage: RECEIVED 4 CYCLES
  2. CISPLATIN [Suspect]
     Active Substance: CISPLATIN
     Indication: Hepatoblastoma
     Dosage: RECEIVED 4 CYCLES
  3. VINCRISTINE [Suspect]
     Active Substance: VINCRISTINE
     Indication: Hepatoblastoma
     Dosage: RECEIVED 4 CYCLES

REACTIONS (2)
  - Acute kidney injury [Recovered/Resolved]
  - Diarrhoea infectious [Recovered/Resolved]
